FAERS Safety Report 6914671-9 (Version None)
Quarter: 2010Q3

REPORT INFORMATION
  Report Type: 
  Country: None (occurrence: None)
  Receive Date: 20100809
  Receipt Date: 20100729
  Transmission Date: 20110219
  Serious: Yes (Other)
  Sender: FDA-Public Use
  Company Number: DE-ASTRAZENECA-2010SE33726

PATIENT
  Age: 21 Year
  Sex: Male
  Weight: 175 kg

DRUGS (1)
  1. SEROQUEL XR [Suspect]
     Indication: HISTRIONIC PERSONALITY DISORDER
     Route: 048
     Dates: start: 20100621

REACTIONS (1)
  - SUNBURN [None]
